FAERS Safety Report 6021987-X (Version None)
Quarter: 2008Q4

REPORT INFORMATION
  Report Type: 
  Country: None (occurrence: None)
  Receive Date: 20081229
  Receipt Date: 20081215
  Transmission Date: 20090506
  Serious: Yes (Death, Life-Threatening, Other)
  Sender: FDA-Public Use
  Company Number: JP-PFIZER INC-2008095195

PATIENT

DRUGS (4)
  1. MYCOBUTIN [Suspect]
     Route: 048
     Dates: start: 20081017, end: 20081031
  2. CLARITHROMYCIN [Suspect]
     Dosage: UNK
     Dates: start: 20070903
  3. ETHAMBUTOL HYDROCHLORIDE [Suspect]
     Dosage: 3 TABLETS/DAY
     Route: 048
     Dates: start: 20070903, end: 20081111
  4. AMOBAN [Concomitant]
     Route: 048
     Dates: start: 20080111, end: 20081111

REACTIONS (1)
  - INTERSTITIAL LUNG DISEASE [None]
